FAERS Safety Report 8352681-8 (Version None)
Quarter: 2012Q2

REPORT INFORMATION
  Report Type: 
  Country: None (occurrence: None)
  Receive Date: 20120509
  Receipt Date: 20080911
  Transmission Date: 20120825
  Serious: Yes (Hospitalization)
  Sender: FDA-Public Use
  Company Number: 2008S1000554

PATIENT
  Age: 55 Year
  Sex: Male
  Weight: 84 kg

DRUGS (8)
  1. PACLITAXEL [Suspect]
     Indication: NON-SMALL CELL LUNG CANCER
     Dosage: (394 MG, 1 IN 3 WK), INTRAVENOUS
     Route: 042
     Dates: start: 20080717
  2. FENTANYL [Suspect]
     Indication: TUMOUR PAIN
     Dosage: (75 MG, 3 IN 1 WK), TRANSDERMAL
     Route: 062
     Dates: start: 20080717
  3. SIMVASTATIN [Concomitant]
  4. CARBOPLATIN [Suspect]
     Indication: NON-SMALL CELL LUNG CANCER
     Dosage: (849, 14 MG, 1 IN 3 WK), INTRAVENOUS
     Route: 042
     Dates: start: 20080717
  5. CLONAZEPAM [Concomitant]
  6. AG-013, 736 [Suspect]
     Indication: NON-SMALL CELL LUNG CANCER
     Dosage: (5 MG, 2 IN 1 D), ORAL
     Route: 048
     Dates: start: 20080717
  7. CYMBALTA [Concomitant]
  8. MORPHINE SULFATE [Suspect]
     Indication: TUMOUR PAIN
     Dosage: (8 MG, 1 IN 8 HR), PER ORAL
     Route: 048
     Dates: start: 20080724

REACTIONS (1)
  - RENAL FAILURE ACUTE [None]
